FAERS Safety Report 10469935 (Version 3)
Quarter: 2015Q1

REPORT INFORMATION
  Report Type: Not Available
  Country: IT (occurrence: IT)
  Receive Date: 20140923
  Receipt Date: 20150122
  Transmission Date: 20150720
  Serious: Yes (Other)
  Sender: FDA-Public Use
  Company Number: IT-MUNDIPHARMA DS AND PHARMACOVIGILANCE-GBR-2014-0020974

PATIENT
  Age: 49 Year
  Sex: Female

DRUGS (2)
  1. TARGIN COMPRESSA A RILASCIO PROLUNGATO CONTIENE 10MG/5MG [Suspect]
     Active Substance: NALOXONE HYDROCHLORIDE\OXYCODONE HYDROCHLORIDE
     Indication: BONE PAIN
     Dosage: 2 TABLET, DAILY
     Route: 048
     Dates: start: 20131013, end: 20131016
  2. PLENDIL [Concomitant]
     Active Substance: FELODIPINE
     Dosage: 5 MG, UNK

REACTIONS (3)
  - Vomiting [Unknown]
  - Hypertensive crisis [Unknown]
  - Nausea [Unknown]

NARRATIVE: CASE EVENT DATE: 20131013
